FAERS Safety Report 9172594 (Version 1)
Quarter: 2012Q4

REPORT INFORMATION
  Report Type: 
  Country: BR (occurrence: BR)
  Receive Date: 20120911
  Receipt Date: 20120911
  Transmission Date: 20130627
  Serious: Yes (Hospitalization, Other)
  Sender: FDA-Public Use
  Company Number: PHHY2012BR077881

PATIENT
  Age: 54 Year
  Sex: Male

DRUGS (12)
  1. FORMOTEROL [Suspect]
     Indication: DYSPNOEA
     Dosage: UNK UKN, QD
     Dates: start: 2003
  2. INDACATEROL [Concomitant]
     Dosage: 150 ug, QD
     Dates: start: 201112
  3. INDACATEROL [Concomitant]
     Dosage: 300 ug, QD
     Dates: start: 201112
  4. MOXIFLOXACIN [Concomitant]
     Dosage: UNK UKN, UNK
  5. PREDNISONE [Concomitant]
     Dosage: UNK UKN, UNK
  6. BUDESONIDE [Concomitant]
     Dosage: UNK UKN, UNK
  7. TIOTROPIUM [Concomitant]
     Dosage: UNK UKN, UNK
  8. TIOTROPIUM [Concomitant]
     Dosage: UNK UKN, UNK
  9. TIOTROPIUM [Concomitant]
     Dosage: UNK UKN, UNK
     Dates: start: 201201
  10. ROFLUMILAST [Concomitant]
     Dosage: UNK UKN, UNK
  11. MOMETASONE [Concomitant]
     Dosage: 400 ug, QD
     Dates: start: 201112
  12. MOMETASONE [Concomitant]
     Dosage: 400 ug, QD
     Dates: start: 201201

REACTIONS (14)
  - Infective exacerbation of chronic obstructive airways disease [Recovering/Resolving]
  - Obstructive airways disorder [Not Recovered/Not Resolved]
  - Forced expiratory volume decreased [Not Recovered/Not Resolved]
  - Vital capacity decreased [Not Recovered/Not Resolved]
  - Productive cough [Unknown]
  - Sputum retention [Unknown]
  - Pyrexia [Unknown]
  - Dyspnoea [Recovering/Resolving]
  - Wheezing [Not Recovered/Not Resolved]
  - Tachypnoea [Unknown]
  - Snoring [Unknown]
  - Lung hyperinflation [Unknown]
  - Left ventricular dysfunction [Unknown]
  - Weight decreased [Unknown]
